FAERS Safety Report 5843937-9 (Version None)
Quarter: 2008Q3

REPORT INFORMATION
  Report Type: 
  Country: None (occurrence: None)
  Receive Date: 20080731
  Receipt Date: 20080428
  Transmission Date: 20090109
  Serious: No
  Sender: FDA-Public Use
  Company Number: US200804000166

PATIENT
  Age: 53 Year
  Sex: Female
  Weight: 107.9 kg

DRUGS (9)
  1. BYETTA [Suspect]
     Indication: TYPE 2 DIABETES MELLITUS
     Dosage: 5 UG, DAILY (1/D), SUBCUTANEOUS ; 5 UG, 2/D, SUBCUTANEOUS ; 10 UG, 2/D
     Route: 058
     Dates: start: 20080301
  2. BYETTA [Suspect]
     Indication: TYPE 2 DIABETES MELLITUS
     Dosage: 5 UG, DAILY (1/D), SUBCUTANEOUS ; 5 UG, 2/D, SUBCUTANEOUS ; 10 UG, 2/D
     Route: 058
     Dates: start: 20080309
  3. ACTOS [Concomitant]
  4. NORVASC [Concomitant]
  5. LISINOPRIL [Concomitant]
  6. METFORMIN HCL [Concomitant]
  7. GLIPIZIDE [Concomitant]
  8. FLAXSEED OIL (LINUM USITATISSIMUM SEED OIL) [Concomitant]
  9. STOOL SOFTENER (DOCUSATE SODIUM) [Concomitant]

REACTIONS (13)
  - ABDOMINAL PAIN UPPER [None]
  - BLOOD GLUCOSE DECREASED [None]
  - CONSTIPATION [None]
  - EYE IRRITATION [None]
  - FATIGUE [None]
  - NAUSEA [None]
  - ODYNOPHAGIA [None]
  - OVERDOSE [None]
  - RASH [None]
  - SWELLING FACE [None]
  - TREMOR [None]
  - URINARY TRACT INFECTION [None]
  - WEIGHT INCREASED [None]
